FAERS Safety Report 12457106 (Version 7)
Quarter: 2017Q3

REPORT INFORMATION
  Report Type: Report from Study
  Country: DE (occurrence: DE)
  Receive Date: 20160610
  Receipt Date: 20170803
  Transmission Date: 20171127
  Serious: Yes (Hospitalization)
  Sender: FDA-Public Use
  Company Number: PHHY2016DE077593

PATIENT
  Sex: Female
  Weight: 69 kg

DRUGS (8)
  1. COSENTYX [Suspect]
     Active Substance: SECUKINUMAB
     Dosage: 300 MG, PER APPLICATION, PRE-FILLED PEN
     Route: 058
     Dates: start: 20161006
  2. CALCIPOTRIENE AND BETAMETHASONE DIPROPIONATE [Concomitant]
     Active Substance: BETAMETHASONE DIPROPIONATE\CALCIPOTRIENE
     Indication: PSORIASIS
     Dosage: UNK UKN, QW
     Route: 061
     Dates: start: 20150810
  3. CALCITRIOL. [Concomitant]
     Active Substance: CALCITRIOL
     Indication: PSORIASIS
     Dosage: 2 DF, QD
     Route: 061
     Dates: start: 20150810
  4. COSENTYX [Suspect]
     Active Substance: SECUKINUMAB
     Dosage: 300 MG, PER APPLICATION, PRE-FILLED PEN
     Route: 058
     Dates: start: 20160609
  5. COSENTYX [Suspect]
     Active Substance: SECUKINUMAB
     Dosage: 300 MG, PER APPLICATION, PRE-FILLED PEN
     Route: 058
     Dates: start: 20160714
  6. COSENTYX [Suspect]
     Active Substance: SECUKINUMAB
     Dosage: 300 MG, PER APPLICATION, PRE-FILLED PEN
     Route: 058
     Dates: start: 20160811
  7. COSENTYX [Suspect]
     Active Substance: SECUKINUMAB
     Dosage: 300 MG, PER APPLICATION, PRE-FILLED PEN
     Route: 058
     Dates: start: 20160908
  8. COSENTYX [Suspect]
     Active Substance: SECUKINUMAB
     Indication: PSORIASIS
     Dosage: 300 MG, QMO (PRE APPLICATION)
     Route: 058
     Dates: start: 20160513

REACTIONS (6)
  - Fatigue [Unknown]
  - Epistaxis [Recovered/Resolved with Sequelae]
  - Eye swelling [Recovered/Resolved]
  - Nasopharyngitis [Recovered/Resolved]
  - Palpitations [Unknown]
  - Nausea [Unknown]

NARRATIVE: CASE EVENT DATE: 20160513
